FAERS Safety Report 10729477 (Version 1)
Quarter: 2015Q1

REPORT INFORMATION
  Report Type: Spontaneous
  Country: US (occurrence: None)
  Receive Date: 20150102
  Receipt Date: 20150102
  Transmission Date: 20150721
  Serious: No
  Sender: FDA-Public Use
  Company Number: NVUS1600-14-00039

PATIENT
  Age: 77 Year
  Sex: Female

DRUGS (1)
  1. LYMPHOSEEK [Suspect]
     Active Substance: TECHNETIUM TC-99M TILMANOCEPT
     Indication: LYMPHATIC MAPPING
     Route: 058
     Dates: start: 20141001, end: 20141001

REACTIONS (1)
  - Drug ineffective [None]

NARRATIVE: CASE EVENT DATE: 20141001
